FAERS Safety Report 23885105 (Version 1)
Quarter: 2024Q2

REPORT INFORMATION
  Report Type: Spontaneous
  Country: AU (occurrence: AU)
  Receive Date: 20240522
  Receipt Date: 20240522
  Transmission Date: 20240715
  Serious: Yes (Hospitalization)
  Sender: FDA-Public Use
  Company Number: AU-SUN PHARMACEUTICAL INDUSTRIES LTD-2024R1-447377

PATIENT
  Age: 70 Year
  Sex: Female
  Weight: 83.5 kg

DRUGS (19)
  1. DOXORUBICIN [Suspect]
     Active Substance: DOXORUBICIN
     Indication: Diffuse large B-cell lymphoma
     Dosage: 103 MILLIGRAM INTERVAL: 3 WEEK
     Route: 042
     Dates: start: 20231019, end: 20240201
  2. VINCRISTINE [Suspect]
     Active Substance: VINCRISTINE
     Indication: Diffuse large B-cell lymphoma
     Dosage: 2 MILLIGRAM INTERVAL: 3 WEEK
     Route: 042
     Dates: start: 20231019, end: 20240201
  3. PREDNISONE [Suspect]
     Active Substance: PREDNISONE
     Indication: Diffuse large B-cell lymphoma
     Dosage: 100 MILLIGRAM INTERVAL: 1 DAY
     Route: 048
     Dates: start: 20231019, end: 20240205
  4. CYCLOPHOSPHAMIDE [Suspect]
     Active Substance: CYCLOPHOSPHAMIDE
     Indication: Diffuse large B-cell lymphoma
     Dosage: 1545 MILLIGRAM ; INTERVAL: 3 WEEK
     Route: 042
     Dates: start: 20231019, end: 20231019
  5. EPCORITAMAB [Suspect]
     Active Substance: EPCORITAMAB
     Indication: Diffuse large B-cell lymphoma
     Dosage: 48 MILLIGRAM ; INTERVAL: 3 WEEK
     Route: 058
     Dates: start: 20231019
  6. RITUXIMAB [Suspect]
     Active Substance: RITUXIMAB
     Indication: Diffuse large B-cell lymphoma
     Dosage: 772.5 MILLIGRAM INTERVAL: 3 WEEK
     Route: 042
     Dates: start: 20231019, end: 20240201
  7. BACTRIM [Concomitant]
     Active Substance: SULFAMETHOXAZOLE\TRIMETHOPRIM
     Indication: Antibiotic prophylaxis
     Dosage: UNK
     Route: 048
     Dates: start: 20231013
  8. MOVICOL [Concomitant]
     Active Substance: POLYETHYLENE GLYCOL 3350\POTASSIUM CHLORIDE\SODIUM BICARBONATE\SODIUM CHLORIDE
     Indication: Constipation
     Dosage: UNK
     Route: 048
     Dates: start: 20231022
  9. CLOTRIMAZOLE [Concomitant]
     Active Substance: CLOTRIMAZOLE
     Indication: Fungal skin infection
     Dosage: UNK
     Route: 065
     Dates: start: 20231109
  10. CHOLECALCIFEROL [Concomitant]
     Active Substance: CHOLECALCIFEROL
     Indication: Vitamin supplementation
     Dosage: 1000  INTERNATIONAL UNIT INTERVAL: 1 DAY
     Route: 048
     Dates: start: 20231013
  11. GLICLAZIDE [Concomitant]
     Active Substance: GLICLAZIDE
     Indication: Type 2 diabetes mellitus
     Dosage: 80 MILLIGRAM
     Route: 048
     Dates: start: 20231013
  12. LORATADINE [Concomitant]
     Active Substance: LORATADINE
     Indication: Antiallergic therapy
     Dosage: 10 MILLIGRAM INTERVAL: 3 WEEK;
     Route: 048
     Dates: start: 20231019
  13. MAGNESIUM ASPARTATE [Concomitant]
     Active Substance: MAGNESIUM ASPARTATE
     Indication: Mineral supplementation
     Dosage: 1000 MILLIGRAM INTERVAL: 1 DAY
     Route: 048
     Dates: start: 20231013
  14. METFORMIN HYDROCHLORIDE [Concomitant]
     Active Substance: METFORMIN HYDROCHLORIDE
     Indication: Type 2 diabetes mellitus
     Dosage: 1000 MILLIGRAM INTERVAL: 1 DAY
     Route: 048
     Dates: start: 20231013
  15. NYSTATIN [Concomitant]
     Active Substance: NYSTATIN
     Indication: Oral candidiasis
     Dosage: 1 MILLILITER
     Route: 048
     Dates: start: 20240112
  16. PALONOSETRON [Concomitant]
     Active Substance: PALONOSETRON
     Indication: Prophylaxis of nausea and vomiting
     Dosage: 250 MICROGRAM INTERVAL: 3 WEEK
     Route: 042
     Dates: start: 20231019
  17. PANTOPRAZOLE SODIUM [Concomitant]
     Active Substance: PANTOPRAZOLE SODIUM
     Indication: Gastrooesophageal reflux prophylaxis
     Dosage: 40 MILLIGRAM INTERVAL: 1 DAY
     Route: 048
     Dates: start: 20231013
  18. ACETAMINOPHEN [Concomitant]
     Active Substance: ACETAMINOPHEN
     Indication: Prophylaxis
     Dosage: 1000 MILLIGRAM INTERVAL: 3 WEEK
     Route: 042
     Dates: start: 20231019
  19. ACETAMINOPHEN [Concomitant]
     Active Substance: ACETAMINOPHEN
     Dosage: 1000 MILLIGRAM INTERVAL: 3 WEEK
     Route: 042
     Dates: start: 20231117

REACTIONS (1)
  - Decreased appetite [Recovered/Resolved]

NARRATIVE: CASE EVENT DATE: 20240219
